FAERS Safety Report 12428506 (Version 1)
Quarter: 2016Q2

REPORT INFORMATION
  Report Type: Spontaneous
  Country: FR (occurrence: FR)
  Receive Date: 20160602
  Receipt Date: 20160602
  Transmission Date: 20160815
  Serious: Yes (Other)
  Sender: FDA-Public Use
  Company Number: FR-BAYER-2016-062951

PATIENT
  Age: 32 Year
  Sex: Female
  Weight: 52 kg

DRUGS (1)
  1. MIRENA [Suspect]
     Active Substance: LEVONORGESTREL
     Dosage: 20 MCG/24HR, CONT
     Route: 015
     Dates: start: 20121016, end: 201603

REACTIONS (5)
  - Abortion spontaneous [None]
  - Drug ineffective [None]
  - Pregnancy with contraceptive device [None]
  - Menstruation delayed [None]
  - Retained placenta or membranes [None]

NARRATIVE: CASE EVENT DATE: 2016
